FAERS Safety Report 5000992-6 (Version None)
Quarter: 2006Q2

REPORT INFORMATION
  Report Type: 
  Country: None (occurrence: None)
  Receive Date: 20060512
  Receipt Date: 20060420
  Transmission Date: 20061013
  Serious: Yes (Hospitalization, Disabling, Other)
  Sender: FDA-Public Use
  Company Number: 2006PK00813

PATIENT
  Age: 10295 Day
  Sex: Female
  Weight: 54 kg

DRUGS (5)
  1. CARBOSTESIN 0.5 % HYPERBAR [Suspect]
     Indication: CAESAREAN SECTION
     Route: 037
     Dates: start: 20060412, end: 20060412
  2. FENTANYL [Suspect]
     Indication: CAESAREAN SECTION
     Route: 008
     Dates: start: 20060412, end: 20060412
  3. SODIUM CITRATE [Concomitant]
     Route: 048
     Dates: start: 20060412, end: 20060412
  4. DORMICUM [Concomitant]
     Route: 042
  5. SCANDICAIN [Concomitant]
     Dosage: 2 ML SUBCUTANEOUSLY AND INTERSPINALLY

REACTIONS (10)
  - BRADYCARDIA [None]
  - DELAYED RECOVERY FROM ANAESTHESIA [None]
  - DRUG EXPOSURE DURING PREGNANCY [None]
  - DYSPNOEA [None]
  - LABOUR COMPLICATION [None]
  - NEUROMUSCULAR BLOCKADE [None]
  - PARAESTHESIA [None]
  - PARAPLEGIA [None]
  - PROCEDURAL PAIN [None]
  - SPINAL CORD DISORDER [None]
